FAERS Safety Report 9436349 (Version 1)
Quarter: 2013Q3

REPORT INFORMATION
  Report Type: Spontaneous
  Country: US (occurrence: US)
  Receive Date: 20130802
  Receipt Date: 20130802
  Transmission Date: 20140515
  Serious: No
  Sender: FDA-Public Use
  Company Number: US-BIOGENIDEC-2013BI070763

PATIENT
  Sex: Female

DRUGS (5)
  1. AVONEX [Suspect]
     Indication: MULTIPLE SCLEROSIS
     Route: 030
     Dates: start: 20110316
  2. SANCTURA XR [Concomitant]
  3. ZYRTEC ALLERGY [Concomitant]
  4. PULMICORT FLEXHALER [Concomitant]
  5. FORADIL AEROLIZER [Concomitant]

REACTIONS (1)
  - Injection site bruising [Unknown]
